FAERS Safety Report 4836774-5 (Version None)
Quarter: 2005Q4

REPORT INFORMATION
  Report Type: 
  Country: None (occurrence: None)
  Receive Date: 20051123
  Receipt Date: 20051010
  Transmission Date: 20060501
  Serious: Yes (Hospitalization, Disabling)
  Sender: FDA-Public Use
  Company Number: DE-MERCK-0510DEU00037

PATIENT
  Age: 56 Year
  Sex: Male
  Weight: 78 kg

DRUGS (2)
  1. PROPECIA [Suspect]
     Indication: MALE PATTERN BALDNESS
     Route: 048
     Dates: start: 20000101, end: 20000101
  2. PROPECIA [Suspect]
     Route: 048
     Dates: start: 20040101, end: 20050901

REACTIONS (1)
  - SALIVARY GLAND NEOPLASM [None]
